FAERS Safety Report 24857078 (Version 1)
Quarter: 2025Q1

REPORT INFORMATION
  Report Type: Report from Study
  Country: EG (occurrence: EG)
  Receive Date: 20250117
  Receipt Date: 20250117
  Transmission Date: 20250408
  Serious: Yes (Death, Other)
  Sender: SANOFI AVENTIS
  Company Number: EG-DialogSolutions-SAAVPROD-PI733292-C1

PATIENT

DRUGS (3)
  1. OXALIPLATIN [Suspect]
     Active Substance: OXALIPLATIN
     Indication: Rectal cancer
  2. CAPECITABINE [Suspect]
     Active Substance: CAPECITABINE
     Indication: Rectal cancer
     Dosage: 1000 MG/M2, BID (EVERY 3 WEEKS)
  3. CAPECITABINE [Suspect]
     Active Substance: CAPECITABINE
     Dosage: 825 MG/M2, BID (CHEMOTHERAPY)

REACTIONS (1)
  - Death [Fatal]
